FAERS Safety Report 5311814-8 (Version None)
Quarter: 2007Q2

REPORT INFORMATION
  Report Type: 
  Country: None (occurrence: None)
  Receive Date: 20070430
  Receipt Date: 20060720
  Transmission Date: 20071010
  Serious: No
  Sender: FDA-Public Use
  Company Number: 2005UW16802

PATIENT
  Age: 89 Year
  Sex: Female
  Weight: 67.1 kg

DRUGS (7)
  1. NEXIUM [Suspect]
     Indication: GASTROOESOPHAGEAL REFLUX DISEASE
     Route: 048
  2. ASPIRIN [Concomitant]
  3. NORVASC [Concomitant]
  4. ALTACE [Concomitant]
  5. LIPITOR [Concomitant]
  6. XANAX [Concomitant]
  7. MULTI-VITAMIN [Concomitant]

REACTIONS (8)
  - ALOPECIA [None]
  - BURNING SENSATION [None]
  - DRY MOUTH [None]
  - DRY SKIN [None]
  - INCREASED UPPER AIRWAY SECRETION [None]
  - OCULAR HYPERAEMIA [None]
  - SKIN WRINKLING [None]
  - STOMATITIS [None]
